FAERS Safety Report 5771630-X (Version None)
Quarter: 2008Q2

REPORT INFORMATION
  Report Type: 
  Country: None (occurrence: None)
  Receive Date: 20080612
  Receipt Date: 20080612
  Transmission Date: 20081010
  Serious: No
  Sender: FDA-Public Use
  Company Number: None

PATIENT
  Age: 56 Year
  Sex: Male

DRUGS (1)
  1. HALDOL [Suspect]

REACTIONS (5)
  - AKATHISIA [None]
  - CEREBRAL DISORDER [None]
  - DYSGRAPHIA [None]
  - READING DISORDER [None]
  - TARDIVE DYSKINESIA [None]
